FAERS Safety Report 8414929-0 (Version None)
Quarter: 2012Q2

REPORT INFORMATION
  Report Type: 
  Country: None (occurrence: None)
  Receive Date: 20120601
  Receipt Date: 20120601
  Transmission Date: 20120825
  Serious: Yes (Disabling)
  Sender: FDA-Public Use
  Company Number: None

PATIENT
  Age: 40 Year
  Sex: Female
  Weight: 68.0396 kg

DRUGS (2)
  1. TRIAMCINOLONE [Suspect]
     Indication: ECZEMA
     Dosage: WHEREVER YOU NEEDED ON BODY 2-4 TIMES A DAY TOP
     Route: 061
     Dates: start: 20100816, end: 20120115
  2. DESONIDE [Suspect]
     Indication: ECZEMA
     Dosage: WHEREVER NEEDED ON FACE 2-4 TIMES DAY TOP
     Route: 061
     Dates: start: 20100922, end: 20120115

REACTIONS (6)
  - DRY EYE [None]
  - DRUG DEPENDENCE [None]
  - ECZEMA [None]
  - WITHDRAWAL SYNDROME [None]
  - SUICIDAL IDEATION [None]
  - FEELING ABNORMAL [None]
